FAERS Safety Report 7076681-3 (Version None)
Quarter: 2010Q4

REPORT INFORMATION
  Report Type: 
  Country: None (occurrence: None)
  Receive Date: 20101101
  Receipt Date: 20101019
  Transmission Date: 20110411
  Serious: Yes (Death)
  Sender: FDA-Public Use
  Company Number: US-ELI_LILLY_AND_COMPANY-US200911003825

PATIENT
  Age: 87 Year
  Sex: Female

DRUGS (1)
  1. FORTEO [Suspect]
     Dates: start: 20091106

REACTIONS (6)
  - ARTHRALGIA [None]
  - ASTHENIA [None]
  - DEATH [None]
  - DRUG DOSE OMISSION [None]
  - INJECTION SITE ERYTHEMA [None]
  - PRURITUS [None]
